FAERS Safety Report 11750851 (Version 1)
Quarter: 2015Q4

REPORT INFORMATION
  Report Type: Spontaneous
  Country: US (occurrence: US)
  Receive Date: 20151118
  Receipt Date: 20151118
  Transmission Date: 20160304
  Serious: No
  Sender: FDA-Public Use
  Company Number: US-NOVOPROD-462396

PATIENT
  Age: 73 Year
  Sex: Male

DRUGS (1)
  1. NOVOLOG [Suspect]
     Active Substance: INSULIN ASPART
     Indication: TYPE 2 DIABETES MELLITUS
     Dosage: 24 U IN THE MORNING, 28U BEFORE LUNCH, 48U BEFORE DINNER, AND 58U BEFORE BEDTIME
     Route: 058
     Dates: start: 2013

REACTIONS (2)
  - Product quality issue [Not Recovered/Not Resolved]
  - Grip strength decreased [Not Recovered/Not Resolved]
